FAERS Safety Report 20671004 (Version 2)
Quarter: 2022Q2

REPORT INFORMATION
  Report Type: Spontaneous
  Country: US (occurrence: US)
  Receive Date: 20220404
  Receipt Date: 20220408
  Transmission Date: 20220721
  Serious: Yes (Hospitalization)
  Sender: FDA-Public Use
  Company Number: US-GILEAD-2022-0575659

PATIENT
  Age: 70 Year
  Sex: Female

DRUGS (4)
  1. VEKLURY [Interacting]
     Active Substance: REMDESIVIR
     Indication: COVID-19 pneumonia
     Route: 065
  2. METOPROLOL SUCCINATE [Interacting]
     Active Substance: METOPROLOL SUCCINATE
     Indication: Cardiac failure
     Route: 065
  3. DEXAMETHASONE [Concomitant]
     Active Substance: DEXAMETHASONE
  4. OXYGEN [Concomitant]
     Active Substance: OXYGEN

REACTIONS (3)
  - Atrioventricular block second degree [Recovered/Resolved]
  - Bradycardia [Recovered/Resolved]
  - Drug interaction [Recovered/Resolved]
